FAERS Safety Report 7607046-0 (Version None)
Quarter: 2011Q3

REPORT INFORMATION
  Report Type: 
  Country: None (occurrence: None)
  Receive Date: 20110713
  Receipt Date: 20110630
  Transmission Date: 20111222
  Serious: Yes (Other)
  Sender: FDA-Public Use
  Company Number: FR-JNJFOC-20110510905

PATIENT
  Age: 23 Year
  Sex: Female

DRUGS (4)
  1. REMICADE [Suspect]
     Route: 042
     Dates: start: 20101217
  2. REMICADE [Suspect]
     Route: 042
     Dates: start: 20101203
  3. REMICADE [Suspect]
     Indication: CROHN'S DISEASE
     Route: 042
     Dates: start: 20110114
  4. REMICADE [Suspect]
     Route: 042
     Dates: start: 20110323

REACTIONS (8)
  - DYSPNOEA [None]
  - INFUSION RELATED REACTION [None]
  - NEUROPATHY PERIPHERAL [None]
  - TACHYCARDIA [None]
  - HYPERHIDROSIS [None]
  - DERMATITIS ALLERGIC [None]
  - HYPERSENSITIVITY [None]
  - AXONAL NEUROPATHY [None]
